FAERS Safety Report 9287018 (Version 2)
Quarter: 2013Q4

REPORT INFORMATION
  Report Type: Spontaneous
  Country: US (occurrence: US)
  Receive Date: 20130513
  Receipt Date: 20131016
  Transmission Date: 20140711
  Serious: Yes (Hospitalization)
  Sender: FDA-Public Use
  Company Number: US-B.I. PHARMACEUTICALS,INC./RIDGEFIELD-2013-BI-13169BP

PATIENT
  Age: 57 Year
  Sex: Female
  Weight: 92.53 kg

DRUGS (11)
  1. PRADAXA [Suspect]
     Indication: ANTICOAGULANT THERAPY
     Dosage: 300 MG
     Route: 048
     Dates: start: 20110622, end: 20120131
  2. ADVIL [Concomitant]
     Route: 048
  3. ZOCOR [Concomitant]
     Dosage: 40 MG
     Route: 048
  4. OXYCODONE-ACETAMINOPHEN [Concomitant]
     Route: 048
  5. OMEPRAZOLE [Concomitant]
     Dosage: 20 MG
     Route: 048
  6. SINGULAIR [Concomitant]
     Dosage: 10 MG
     Route: 048
  7. NEURONTIN [Concomitant]
     Dosage: 600 MG
     Route: 048
  8. DUONEB [Concomitant]
     Route: 055
  9. PLAVIX [Concomitant]
     Dosage: 75 MG
     Route: 048
  10. SINEMET [Concomitant]
     Route: 048
  11. GLUCOPHAGE [Concomitant]
     Dosage: 1000 MG
     Route: 048

REACTIONS (3)
  - Gastrointestinal haemorrhage [Recovered/Resolved]
  - Pseudomembranous colitis [Unknown]
  - Haemorrhagic anaemia [Unknown]
